FAERS Safety Report 9432909 (Version 1)
Quarter: 2013Q3

REPORT INFORMATION
  Report Type: Spontaneous
  Country: JP (occurrence: None)
  Receive Date: 20130729
  Receipt Date: 20130729
  Transmission Date: 20140515
  Serious: Yes (Other)
  Sender: FDA-Public Use
  Company Number: SYM-2013-06634

PATIENT
  Age: 48 Year
  Sex: Male

DRUGS (5)
  1. FLUOROURACIL (FLUOROURACIL) (FLUOROURACIL) [Suspect]
     Indication: RECTAL CANCER METASTATIC
     Dates: start: 201011
  2. OXAPLATIN [Suspect]
     Indication: RECTAL CANCER METASTATIC
     Dates: start: 201011
  3. LEUCOVORIN [Suspect]
     Indication: RECTAL CANCER METASTATIC
     Dates: start: 201011
  4. BEVACIZUMAB [Suspect]
     Indication: RECTAL CANCER METASTATIC
     Dates: start: 201011
  5. OXYGEN (OXYGEN) (OXYGEN) [Concomitant]

REACTIONS (1)
  - Haematotoxicity [None]
